FAERS Safety Report 8555201-8 (Version None)
Quarter: 2012Q3

REPORT INFORMATION
  Report Type: 
  Country: None (occurrence: None)
  Receive Date: 20120731
  Receipt Date: 20120724
  Transmission Date: 20120928
  Serious: Yes (Other)
  Sender: FDA-Public Use
  Company Number: US-ABBOTT-12P-163-0956591-00

PATIENT
  Sex: Female

DRUGS (6)
  1. SYNTHROID [Suspect]
     Indication: HYPOTHYROIDISM
     Dosage: NOT REPORTED DOSE
     Dates: start: 19870101
  2. SYNTHROID [Suspect]
     Dosage: ^CERTAIN PILLS^ TO MAKE 112.5 MCG DAILY
  3. SYNTHROID [Suspect]
     Dosage: 1-100MCG TABLET + 1/2-25 MCG TABLET
  4. SYNTHROID [Suspect]
     Dosage: ^CERTAIN PILLS^ TO MAKE 112.5 MCG DAILY
  5. SYNTHROID [Suspect]
     Dosage: ^CERTAIN PILLS^ TO MAKE 112.5 MCG DAILY
  6. SYNTHROID [Suspect]
     Dosage: 1-100MCG TABLET + 1/2-25 MCG TABLET

REACTIONS (8)
  - BREAST CANCER [None]
  - ANXIETY [None]
  - HYPOTHYROIDISM [None]
  - CONSTIPATION [None]
  - FATIGUE [None]
  - IRRITABILITY [None]
  - FEELING COLD [None]
  - FLUID RETENTION [None]
